FAERS Safety Report 5088867-8 (Version None)
Quarter: 2006Q3

REPORT INFORMATION
  Report Type: 
  Country: None (occurrence: None)
  Receive Date: 20060825
  Receipt Date: 20060405
  Transmission Date: 20061208
  Serious: Yes (Hospitalization)
  Sender: FDA-Public Use
  Company Number: US-ROCHE-443548

PATIENT
  Age: 53 Year
  Sex: Female

DRUGS (1)
  1. ACCUTANE [Suspect]
     Indication: DRUG USE FOR UNKNOWN INDICATION
     Route: 048
     Dates: start: 19930615, end: 19940615

REACTIONS (12)
  - ABSCESS INTESTINAL [None]
  - ACUTE SINUSITIS [None]
  - ATELECTASIS [None]
  - BRONCHITIS [None]
  - CLOSTRIDIAL INFECTION [None]
  - DIVERTICULUM [None]
  - ENTEROCOLITIS [None]
  - ESSENTIAL HYPERTENSION [None]
  - INFLAMMATORY BOWEL DISEASE [None]
  - IRRITABLE BOWEL SYNDROME [None]
  - LARGE INTESTINE PERFORATION [None]
  - PNEUMONIA [None]
